FAERS Safety Report 11272304 (Version 1)
Quarter: 2015Q3

REPORT INFORMATION
  Report Type: Report from Study
  Country: US (occurrence: US)
  Receive Date: 20150715
  Receipt Date: 20150715
  Transmission Date: 20151125
  Serious: No
  Sender: FDA-Public Use
  Company Number: PHHY2014US112431

PATIENT
  Age: 60 Year
  Sex: Male
  Weight: 78.92 kg

DRUGS (16)
  1. CYCLOBENZAPRINE [Concomitant]
     Active Substance: CYCLOBENZAPRINE
     Indication: MUSCLE SPASMS
     Dosage: 5 MG, PRN
     Route: 048
     Dates: start: 20120501, end: 20140411
  2. BACLOFEN. [Concomitant]
     Active Substance: BACLOFEN
     Indication: MUSCLE SPASTICITY
     Dosage: 20 MG, TID
     Route: 048
     Dates: start: 20120127
  3. VITAMIN B12 [Concomitant]
     Active Substance: CYANOCOBALAMIN
     Indication: GENERAL PHYSICAL CONDITION ABNORMAL
     Dosage: 1000 UG, UNK
     Route: 048
     Dates: start: 20120501, end: 20140411
  4. FUROSEMIDE. [Concomitant]
     Active Substance: FUROSEMIDE
     Indication: OEDEMA
     Dosage: 20 MG, UNK
     Route: 048
     Dates: start: 20121105
  5. LEVOBUNOLOL [Concomitant]
     Active Substance: LEVOBUNOLOL
     Indication: GLAUCOMA
     Dosage: 0.5 %, UNK
     Route: 047
     Dates: start: 20141009
  6. POTASSIUM CHLORIDE. [Concomitant]
     Active Substance: POTASSIUM CHLORIDE
     Indication: GENERAL PHYSICAL CONDITION ABNORMAL
     Dosage: 750 MG, UNK
     Route: 048
     Dates: start: 20121105
  7. GILENYA [Suspect]
     Active Substance: FINGOLIMOD HYDROCHLORIDE
     Indication: MULTIPLE SCLEROSIS
     Dosage: 0.5 MG, QD
     Route: 048
     Dates: start: 20140314
  8. ASPIRIN. [Concomitant]
     Active Substance: ASPIRIN
     Indication: GENERAL PHYSICAL CONDITION ABNORMAL
     Dosage: 81 MG, UNK
     Route: 048
     Dates: start: 20110727
  9. GABAPENTIN. [Concomitant]
     Active Substance: GABAPENTIN
     Indication: TRIGEMINAL NEURALGIA
     Dosage: 300 MG, UNK
     Route: 048
     Dates: start: 20141217
  10. VITAMIN B6 [Concomitant]
     Active Substance: PYRIDOXINE HYDROCHLORIDE
     Indication: GENERAL PHYSICAL CONDITION ABNORMAL
     Dosage: UNK
     Route: 048
     Dates: start: 20121105
  11. VITAMIN D [Concomitant]
     Active Substance: CHOLECALCIFEROL
     Indication: VITAMIN D DEFICIENCY
     Dosage: 1000 IU, UNK
     Route: 048
     Dates: start: 20060228
  12. CARBAMAZEPIN [Concomitant]
     Active Substance: CARBAMAZEPINE
     Indication: TRIGEMINAL NEURALGIA
     Dosage: 100 MG, UNK
     Route: 048
     Dates: start: 20120214
  13. BUPROPION. [Concomitant]
     Active Substance: BUPROPION
     Indication: DEPRESSION
     Dosage: 300 MG, UNK
     Route: 048
     Dates: start: 20071126
  14. ACYCLOVIR. [Concomitant]
     Active Substance: ACYCLOVIR
     Indication: GENITAL HERPES
     Dosage: 400 MG, UNK
     Route: 048
     Dates: start: 20140917
  15. NAPROXEN. [Concomitant]
     Active Substance: NAPROXEN
     Indication: TRIGEMINAL NEURALGIA
     Dosage: 500 MG, UNK
     Route: 048
     Dates: start: 20130906
  16. SERTRALINE [Concomitant]
     Active Substance: SERTRALINE HYDROCHLORIDE
     Indication: DEPRESSION
     Dosage: 100 MG, UNK
     Route: 048
     Dates: start: 20140411

REACTIONS (4)
  - Balance disorder [Recovered/Resolved]
  - Stress [Unknown]
  - Polyuria [Recovered/Resolved]
  - Weight increased [Recovered/Resolved]

NARRATIVE: CASE EVENT DATE: 20140411
